FAERS Safety Report 7539095-5 (Version None)
Quarter: 2011Q2

REPORT INFORMATION
  Report Type: 
  Country: None (occurrence: None)
  Receive Date: 20110610
  Receipt Date: 20020121
  Transmission Date: 20111010
  Serious: Yes (Death, Hospitalization)
  Sender: FDA-Public Use
  Company Number: PHFR2001GB03495

PATIENT
  Sex: Female
  Weight: 68 kg

DRUGS (3)
  1. FLUPENTIXOL [Concomitant]
     Dosage: VARIABLE
     Dates: start: 19790101, end: 19990101
  2. CLOZAPINE [Suspect]
     Indication: SCHIZOPHRENIA
     Dosage: 600 MG
     Route: 048
     Dates: start: 19980901
  3. LEVOTHYROXINE SODIUM [Suspect]
     Dosage: 150 UG
     Route: 048
     Dates: start: 19470101, end: 20011201

REACTIONS (2)
  - MYOCARDIAL ISCHAEMIA [None]
  - BRONCHOPNEUMONIA [None]
